FAERS Safety Report 14942988 (Version 1)
Quarter: 2018Q2

REPORT INFORMATION
  Report Type: Spontaneous
  Country: US (occurrence: US)
  Receive Date: 20180528
  Receipt Date: 20180528
  Transmission Date: 20180711
  Serious: No
  Sender: FDA-Public Use
  Company Number: US-009507513-1805USA002294

PATIENT
  Sex: Male

DRUGS (1)
  1. INTRON A [Suspect]
     Active Substance: INTERFERON ALFA-2B
     Indication: PEYRONIE^S DISEASE
     Dosage: 0.25 ML, 1.5 MILLION IU/INJECTION, UP TO 6 CYCLES, AT LEAST 4 WEEKS APART
     Route: 026

REACTIONS (1)
  - Off label use [Unknown]
